FAERS Safety Report 5616511-7 (Version None)
Quarter: 2008Q1

REPORT INFORMATION
  Report Type: 
  Country: None (occurrence: None)
  Receive Date: 20080207
  Receipt Date: 20080201
  Transmission Date: 20080703
  Serious: Yes (Other)
  Sender: FDA-Public Use
  Company Number: NL-BRISTOL-MYERS SQUIBB COMPANY-14066286

PATIENT
  Age: 57 Year
  Sex: Male

DRUGS (4)
  1. SELEKTINE [Suspect]
     Dosage: STARTED AT 40MG AND TAKEN FOR 2 YEARS STOPDATE 08 SEP05 AND THEN 10MG
     Dates: start: 20030901
  2. SIMVASTATIN [Suspect]
  3. ATORVASTATIN CALCIUM [Suspect]
     Indication: HYPERCHOLESTEROLAEMIA
     Dosage: 40MG FOR NINE MONTHS,DATE:08SEP05TO10MAY06,DOSE INCREASED TO 80MG FOR 6WEEKS,DECREASED TO 40MG
     Dates: start: 20050908
  4. TORCETRAPIB [Suspect]

REACTIONS (8)
  - AMNESIA [None]
  - EXERCISE TOLERANCE DECREASED [None]
  - HEPATIC FUNCTION ABNORMAL [None]
  - INFLAMMATION [None]
  - MUSCULAR WEAKNESS [None]
  - MYALGIA [None]
  - RASH [None]
  - SYNCOPE [None]
